FAERS Safety Report 13950483 (Version 1)
Quarter: 2017Q3

REPORT INFORMATION
  Report Type: Spontaneous
  Country: US (occurrence: US)
  Receive Date: 20170908
  Receipt Date: 20170908
  Transmission Date: 20171128
  Serious: No
  Sender: FDA-Public Use
  Company Number: US-ROCHE-1135614

PATIENT
  Age: 81 Year
  Sex: Male

DRUGS (9)
  1. RITUXAN [Suspect]
     Active Substance: RITUXIMAB
     Route: 065
     Dates: start: 20000309
  2. RITUXAN [Suspect]
     Active Substance: RITUXIMAB
     Route: 065
     Dates: start: 20000302
  3. RITUXAN [Suspect]
     Active Substance: RITUXIMAB
     Indication: LEUKAEMIA
     Route: 065
     Dates: start: 20000224
  4. RITUXAN [Suspect]
     Active Substance: RITUXIMAB
     Route: 065
     Dates: start: 20000316
  5. PROCRIT [Concomitant]
     Active Substance: ERYTHROPOIETIN
  6. VINCRISTINE [Concomitant]
     Active Substance: VINCRISTINE
  7. BENADRYL [Concomitant]
     Active Substance: DIPHENHYDRAMINE HYDROCHLORIDE
  8. RITUXAN [Suspect]
     Active Substance: RITUXIMAB
     Indication: LYMPHOMA
     Route: 065
     Dates: start: 20000217
  9. ADRIAMYCIN [Concomitant]
     Active Substance: DOXORUBICIN HYDROCHLORIDE

REACTIONS (3)
  - Asthenia [Unknown]
  - Cough [Unknown]
  - Muscular weakness [Unknown]

NARRATIVE: CASE EVENT DATE: 20000407
